FAERS Safety Report 16828868 (Version 2)
Quarter: 2019Q3

REPORT INFORMATION
  Report Type: Spontaneous
  Country: FR (occurrence: FR)
  Receive Date: 20190919
  Receipt Date: 20190927
  Transmission Date: 20191005
  Serious: Yes (Other)
  Sender: FDA-Public Use
  Company Number: FR-JNJFOC-20190916137

PATIENT
  Age: 27 Year
  Sex: Male
  Weight: 62 kg

DRUGS (4)
  1. TREVICTA [Suspect]
     Active Substance: PALIPERIDONE PALMITATE
     Indication: SCHIZOPHRENIA
     Route: 030
     Dates: start: 20170321
  2. LOXAPAC [Concomitant]
     Active Substance: LOXAPINE
     Indication: ANXIETY
     Route: 048
     Dates: start: 20160501
  3. ESCITALOPRAM [Concomitant]
     Active Substance: ESCITALOPRAM OXALATE
     Indication: DEPRESSION
     Dosage: 10, 15 MG
     Route: 048
     Dates: start: 20131201
  4. LEPTICUR [Concomitant]
     Active Substance: TROPATEPINE HYDROCHLORIDE
     Indication: DRUG TOXICITY PROPHYLAXIS
     Route: 048
     Dates: start: 2016

REACTIONS (3)
  - Delirium [Recovered/Resolved]
  - Product measured potency issue [Recovered/Resolved]
  - Social avoidant behaviour [Recovered/Resolved]

NARRATIVE: CASE EVENT DATE: 201706
